FAERS Safety Report 19318389 (Version 2)
Quarter: 2021Q2

REPORT INFORMATION
  Report Type: Spontaneous
  Country: IT (occurrence: IT)
  Receive Date: 20210527
  Receipt Date: 20210604
  Transmission Date: 20210717
  Serious: Yes (Death)
  Sender: FDA-Public Use
  Company Number: IT-MYLANLABS-2021M1031424

PATIENT
  Sex: Male

DRUGS (1)
  1. LEVETIRACETAM  MYLAN [Suspect]
     Active Substance: LEVETIRACETAM
     Indication: PRODUCT USED FOR UNKNOWN INDICATION
     Dosage: 500 MILLIGRAM (5 TIME THE CORRECT DOSAGE)
     Route: 042

REACTIONS (2)
  - Product label confusion [Fatal]
  - Overdose [Fatal]
